FAERS Safety Report 7799852-7 (Version None)
Quarter: 2011Q4

REPORT INFORMATION
  Report Type: 
  Country: None (occurrence: None)
  Receive Date: 20111006
  Receipt Date: 20111004
  Transmission Date: 20120403
  Serious: Yes (Hospitalization)
  Sender: FDA-Public Use
  Company Number: TR-ABBOTT-11P-161-0860735-00

PATIENT
  Sex: Male
  Weight: 98 kg

DRUGS (2)
  1. INH [Concomitant]
     Indication: PRODUCT USED FOR UNKNOWN INDICATION
     Dosage: 1 X 1
     Route: 048
     Dates: start: 20111004
  2. HUMIRA [Suspect]
     Indication: PSORIASIS
     Dosage: X 2
     Route: 058
     Dates: start: 20111004

REACTIONS (2)
  - HYPOTENSION [None]
  - SYNCOPE [None]
